FAERS Safety Report 15294244 (Version 1)
Quarter: 2018Q3

REPORT INFORMATION
  Report Type: Spontaneous
  Country: US (occurrence: US)
  Receive Date: 20180807
  Receipt Date: 20180807
  Transmission Date: 20181010
  Serious: No
  Sender: FDA-Public Use
  Company Number: None

PATIENT
  Age: 78 Year
  Sex: Female
  Weight: 50.85 kg

DRUGS (11)
  1. XALATAN [Concomitant]
     Active Substance: LATANOPROST
  2. ATORVASTATIN [Concomitant]
     Active Substance: ATORVASTATIN
  3. CALCIUM 1000 + D [Concomitant]
  4. IBRANCE [Suspect]
     Active Substance: PALBOCICLIB
     Indication: BREAST CANCER
     Route: 048
     Dates: start: 20180306
  5. TIMOLOL. [Concomitant]
     Active Substance: TIMOLOL
  6. VITAMIN D [Concomitant]
     Active Substance: CHOLECALCIFEROL
  7. CENTRUM SILVER 50+ WOMEN [Concomitant]
  8. BACLOFEN. [Concomitant]
     Active Substance: BACLOFEN
  9. BIOTIN [Concomitant]
     Active Substance: BIOTIN
  10. METOPROLOL TARTRATE. [Concomitant]
     Active Substance: METOPROLOL TARTRATE
  11. ASPIRIN. [Concomitant]
     Active Substance: ASPIRIN

REACTIONS (1)
  - Pruritus [None]

NARRATIVE: CASE EVENT DATE: 20180731
